FAERS Safety Report 8396575-0 (Version None)
Quarter: 2012Q2

REPORT INFORMATION
  Report Type: 
  Country: None (occurrence: None)
  Receive Date: 20120530
  Receipt Date: 20120517
  Transmission Date: 20120825
  Serious: Yes (Death, Life-Threatening, Hospitalization, Other)
  Sender: FDA-Public Use
  Company Number: US-UCBSA-048163

PATIENT
  Age: 48 Year
  Sex: Female
  Weight: 53.5 kg

DRUGS (21)
  1. CIMZIA [Suspect]
     Indication: RHEUMATOID ARTHRITIS
     Dosage: NO OF DOSES RECEIVED: 7
     Route: 058
     Dates: start: 20110915, end: 20111206
  2. PROCHLORPERAZINE [Concomitant]
     Indication: NAUSEA
     Route: 048
     Dates: start: 20110901
  3. MIRALAX [Concomitant]
     Indication: CONSTIPATION
     Route: 048
     Dates: start: 20110901
  4. GUAIFENESIN [Concomitant]
     Indication: RESPIRATORY TRACT CONGESTION
     Route: 048
     Dates: start: 20110901
  5. NADOLOL [Concomitant]
     Indication: MIGRAINE
     Route: 048
     Dates: start: 20110801
  6. WELLBUTRIN XL [Concomitant]
     Indication: DEPRESSION
     Route: 048
     Dates: start: 20070521
  7. NASONEX [Concomitant]
     Indication: HYPERSENSITIVITY
     Dosage: ROUTTE: NASAL INHALATION
     Route: 045
     Dates: start: 20071210
  8. PROZAC [Concomitant]
     Indication: DEPRESSION
     Route: 048
     Dates: start: 20100901
  9. TRAZODONE HCL [Concomitant]
     Indication: DEPRESSION
     Dosage: FREQUENCY: BED TIME
     Route: 048
     Dates: start: 20070521
  10. XANAX [Concomitant]
     Indication: ANXIETY
     Dosage: FREQUENCY: BED TIME/AS NEEDED
     Route: 048
     Dates: start: 20081031
  11. PLAQUENIL [Concomitant]
     Indication: RHEUMATOID ARTHRITIS
     Route: 048
     Dates: start: 20070521
  12. ZOFRAN ODT [Concomitant]
     Indication: NAUSEA
     Dosage: THREE TIMES AS NEEDED
     Route: 048
     Dates: start: 20110401
  13. TYLENOL W/ CODEINE [Concomitant]
     Indication: PAIN
     Dosage: 300-30 MG
     Route: 048
     Dates: start: 20110801
  14. PRILOSEC OTC [Concomitant]
     Indication: GASTROOESOPHAGEAL REFLUX DISEASE
     Route: 048
     Dates: start: 20110801
  15. NADOLOL [Concomitant]
     Indication: VERTIGO
     Route: 048
     Dates: start: 20110801
  16. FIORICET [Concomitant]
     Indication: MIGRAINE
     Dosage: 50-325-40, THREE AS NEEDED
     Route: 048
     Dates: start: 20110201
  17. NADOLOL [Concomitant]
     Indication: TREMOR
     Route: 048
     Dates: start: 20110801
  18. CYCLOBENZAPRINE HCL [Concomitant]
     Indication: MUSCLE TIGHTNESS
     Dosage: 5-10 MG
     Route: 048
     Dates: start: 20111101
  19. BENEFIBER [Concomitant]
     Indication: CONSTIPATION
     Route: 048
     Dates: start: 20110901
  20. MEDROL [Concomitant]
     Indication: SINUSITIS
     Dosage: DEESCLATAING DOSE
     Route: 054
     Dates: start: 20111101
  21. PRIMIDONE [Concomitant]
     Indication: TREMOR
     Route: 048
     Dates: start: 20110801

REACTIONS (5)
  - CRITICAL ILLNESS MYOPATHY [None]
  - SEPTIC SHOCK [None]
  - RENAL FAILURE ACUTE [None]
  - PNEUMONIA [None]
  - RESPIRATORY FAILURE [None]
